FAERS Safety Report 8870186 (Version 4)
Quarter: 2013Q1

REPORT INFORMATION
  Report Type: Spontaneous
  Country: US (occurrence: US)
  Receive Date: 20121027
  Receipt Date: 20130102
  Transmission Date: 20140127
  Serious: No
  Sender: FDA-Public Use
  Company Number: US-ROXANE LABORATORIES, INC.-2012-RO-02031RO

PATIENT
  Sex: Male
  Weight: 72 kg

DRUGS (1)
  1. PREDNISONE [Suspect]
     Indication: CROHN^S DISEASE

REACTIONS (5)
  - Vomiting [Recovered/Resolved]
  - Abdominal pain upper [Recovered/Resolved]
  - Product quality issue [Unknown]
  - Drug ineffective for unapproved indication [Unknown]
  - Anxiety [Unknown]
